FAERS Safety Report 9238925 (Version 2)
Quarter: 2013Q2

REPORT INFORMATION
  Report Type: Spontaneous
  Country: NO (occurrence: NO)
  Receive Date: 20130418
  Receipt Date: 20130617
  Transmission Date: 20140414
  Serious: Yes (Congenital Anomaly)
  Sender: FDA-Public Use
  Company Number: PHHY2013NO036666

PATIENT
  Age: 0 Year
  Sex: Male
  Weight: 2.4 kg

DRUGS (2)
  1. TRAMADOL [Suspect]
     Dosage: 50 MG, QID (1 TABLET UP TO 4 TIMES A DAY, MATERNAL DOSE)
     Route: 064
  2. PARACETAMOL [Concomitant]
     Indication: BACK PAIN
     Dosage: 1 G, TID MATERNAL DOSE
     Route: 048

REACTIONS (3)
  - Congenital anomaly [Recovering/Resolving]
  - Anal atresia [Recovering/Resolving]
  - Spine malformation [Unknown]
